FAERS Safety Report 20023997 (Version 2)
Quarter: 2021Q4

REPORT INFORMATION
  Report Type: Spontaneous
  Country: US (occurrence: US)
  Receive Date: 20211102
  Receipt Date: 20211110
  Transmission Date: 20220303
  Serious: Yes (Death, Other)
  Sender: FDA-Public Use
  Company Number: US-BAYER-2021A240149

PATIENT
  Sex: Female

DRUGS (1)
  1. ASPIRIN\DIPHENHYDRAMINE [Suspect]
     Active Substance: ASPIRIN\DIPHENHYDRAMINE
     Dosage: UNK

REACTIONS (1)
  - Death [Fatal]
